FAERS Safety Report 12539209 (Version 1)
Quarter: 2016Q3

REPORT INFORMATION
  Report Type: Spontaneous
  Country: US (occurrence: US)
  Receive Date: 20160708
  Receipt Date: 20160708
  Transmission Date: 20161109
  Serious: No
  Sender: FDA-Public Use
  Company Number: US-ASTRAZENECA-2016SE45713

PATIENT
  Age: 28875 Day
  Sex: Female
  Weight: 88.5 kg

DRUGS (9)
  1. PANTOPRAZOLE [Concomitant]
     Active Substance: PANTOPRAZOLE SODIUM
     Route: 048
  2. ASPIRIN. [Concomitant]
     Active Substance: ASPIRIN
     Route: 048
  3. LIPITOR [Concomitant]
     Active Substance: ATORVASTATIN CALCIUM
     Route: 048
     Dates: start: 20160421
  4. CRESTOR [Suspect]
     Active Substance: ROSUVASTATIN CALCIUM
     Indication: ANTICOAGULANT THERAPY
     Route: 048
     Dates: start: 20160413, end: 20160416
  5. BRILINTA [Suspect]
     Active Substance: TICAGRELOR
     Route: 048
     Dates: start: 20160413
  6. LASIX [Concomitant]
     Active Substance: FUROSEMIDE
     Indication: FLUID RETENTION
     Dosage: 20 MG DAILY AS NEEDED
     Route: 048
  7. ALLOPURINOL. [Concomitant]
     Active Substance: ALLOPURINOL
     Indication: DIURETIC THERAPY
     Route: 048
  8. COZAAR [Concomitant]
     Active Substance: LOSARTAN POTASSIUM
     Route: 048
  9. METOPROLOL TARTATE [Concomitant]
     Active Substance: METOPROLOL TARTRATE
     Route: 048
     Dates: start: 20160413

REACTIONS (5)
  - Abdominal pain upper [Recovered/Resolved]
  - Pain in extremity [Recovered/Resolved]
  - Hypersensitivity [Recovered/Resolved]
  - Off label use [Unknown]
  - Product use issue [Unknown]

NARRATIVE: CASE EVENT DATE: 20160415
